FAERS Safety Report 10712793 (Version 1)
Quarter: 2015Q1

REPORT INFORMATION
  Report Type: Spontaneous
  Country: US (occurrence: US)
  Receive Date: 20150115
  Receipt Date: 20150115
  Transmission Date: 20150721
  Serious: No
  Sender: FDA-Public Use
  Company Number: US-BRISTOL-MYERS SQUIBB COMPANY-21638648

PATIENT
  Sex: Female
  Weight: 71.2 kg

DRUGS (5)
  1. BABY ASPIRIN [Concomitant]
     Active Substance: ASPIRIN
  2. SOTALOL HYDROCHLORIDE. [Concomitant]
     Active Substance: SOTALOL HYDROCHLORIDE
  3. L-THYROXINE [Concomitant]
     Active Substance: LEVOTHYROXINE
  4. OMEPRAZOL E [Concomitant]
     Active Substance: OMEPRAZOLE
  5. ELIQUIS [Suspect]
     Active Substance: APIXABAN
     Dosage: 5 MG, BID
     Dates: start: 201403

REACTIONS (2)
  - Alopecia [Unknown]
  - Anxiety [Unknown]
